FAERS Safety Report 4449187-5 (Version None)
Quarter: 2004Q3

REPORT INFORMATION
  Report Type: 
  Country: None (occurrence: None)
  Receive Date: 20040910
  Receipt Date: 20040830
  Transmission Date: 20050211
  Serious: Yes (Other)
  Sender: FDA-Public Use
  Company Number: 2004061444

PATIENT
  Age: 64 Year
  Sex: Male

DRUGS (1)
  1. ZYRTEC [Suspect]
     Indication: SEASONAL ALLERGY
     Dosage: 10-20 (1 D), ORAL
     Route: 048

REACTIONS (2)
  - PROSTATE CANCER [None]
  - URGE INCONTINENCE [None]
